FAERS Safety Report 4819834-4 (Version None)
Quarter: 2005Q4

REPORT INFORMATION
  Report Type: 
  Country: None (occurrence: None)
  Receive Date: 20051102
  Receipt Date: 20051013
  Transmission Date: 20060501
  Serious: Yes (Life-Threatening, Hospitalization)
  Sender: FDA-Public Use
  Company Number: 6017924

PATIENT
  Age: 1 Hour
  Sex: Male

DRUGS (1)
  1. LEVOTHYROXINE SODIUM [Suspect]
     Indication: HYPOTHYROIDISM
     Dosage: 0,5 DOSAGE FORMS (0,5 DOSAGE FORMS, D), TRANSPLACENTAL
     Route: 064
     Dates: start: 20050301, end: 20050527

REACTIONS (3)
  - ARRHYTHMIA NEONATAL [None]
  - DRUG EXPOSURE DURING PREGNANCY [None]
  - FOETAL DISTRESS SYNDROME [None]
